FAERS Safety Report 24602461 (Version 2)
Quarter: 2024Q4

REPORT INFORMATION
  Report Type: Spontaneous
  Country: US (occurrence: US)
  Receive Date: 20241111
  Receipt Date: 20241210
  Transmission Date: 20250114
  Serious: Yes (Other)
  Sender: HETERO
  Company Number: US-AMAROX PHARMA-HET2024US04072

PATIENT
  Age: 49 Year
  Sex: Female
  Weight: 84.8 kg

DRUGS (3)
  1. OXCARBAZEPINE [Suspect]
     Active Substance: OXCARBAZEPINE
     Indication: Seizure
     Dosage: THREE 150 MILLIGRAM IN THE MORNING, TWO 150 MILLIGRAM IN MIDDAY, THREE 150 MILLIGRAM IN THE EVENING.
     Route: 048
     Dates: start: 202407
  2. OXCARBAZEPINE [Suspect]
     Active Substance: OXCARBAZEPINE
     Dosage: UNK
     Route: 065
  3. LEVETIRACETAM [Concomitant]
     Active Substance: LEVETIRACETAM
     Indication: Product used for unknown indication
     Dosage: 500 MILLIGRAM EXTENDED RELEASE TABLET IN THE MORNING AND 1500 MILLIGRAMS IN THE EVENING
     Route: 065

REACTIONS (12)
  - Seizure [Recovered/Resolved]
  - Restlessness [Recovered/Resolved]
  - Disturbance in attention [Recovered/Resolved]
  - Cortisol increased [Recovered/Resolved]
  - Akathisia [Recovered/Resolved]
  - Aura [Recovered/Resolved]
  - Insomnia [Recovered/Resolved]
  - Decreased appetite [Recovered/Resolved]
  - Nervousness [Recovered/Resolved]
  - Therapeutic response changed [Unknown]
  - Product substitution issue [Unknown]
  - Drug ineffective [Unknown]

NARRATIVE: CASE EVENT DATE: 20240701
